FAERS Safety Report 10240218 (Version 2)
Quarter: 2014Q2

REPORT INFORMATION
  Report Type: Spontaneous
  Country: PT (occurrence: PT)
  Receive Date: 20140617
  Receipt Date: 20140617
  Transmission Date: 20141212
  Serious: Yes (Other)
  Sender: FDA-Public Use
  Company Number: PHHY2011PT02001

PATIENT
  Age: 4 Year
  Sex: Male

DRUGS (1)
  1. CICLOSPORIN [Suspect]
     Indication: DERMATITIS ATOPIC
     Dosage: 4 MG/KG, PER DAY
     Route: 048

REACTIONS (3)
  - Staphylococcal infection [Recovered/Resolved]
  - Eosinophilia [Recovered/Resolved]
  - Blood immunoglobulin E increased [Unknown]
